FAERS Safety Report 11631998 (Version 2)
Quarter: 2015Q4

REPORT INFORMATION
  Report Type: Spontaneous
  Country: GR (occurrence: GR)
  Receive Date: 20151015
  Receipt Date: 20151021
  Transmission Date: 20160304
  Serious: Yes (Hospitalization, Other)
  Sender: FDA-Public Use
  Company Number: GR-ALKEM-000824

PATIENT
  Age: 75 Year
  Sex: Male

DRUGS (2)
  1. CLARITHROMYCIN/CLARITHROMYCIN LACTOBIONATE [Interacting]
     Active Substance: CLARITHROMYCIN LACTOBIONATE
     Indication: PYREXIA
     Dosage: 500 MG EVERY 12 HOURS
  2. QUETIAPINE/QUETIAPINE FUMARATE [Suspect]
     Active Substance: QUETIAPINE FUMARATE
     Indication: INSOMNIA

REACTIONS (4)
  - Drug level increased [Unknown]
  - Drug interaction [Recovered/Resolved]
  - Self-medication [Unknown]
  - Neuroleptic malignant syndrome [Recovered/Resolved]
